FAERS Safety Report 7255392-5 (Version None)
Quarter: 2011Q1

REPORT INFORMATION
  Report Type: 
  Country: None (occurrence: None)
  Receive Date: 20110129
  Receipt Date: 20100302
  Transmission Date: 20110831
  Serious: Yes (Hospitalization)
  Sender: FDA-Public Use
  Company Number: US-ABBOTT-10P-163-0629934-00

PATIENT
  Sex: Male
  Weight: 74.002 kg

DRUGS (3)
  1. HUMIRA [Suspect]
     Indication: CROHN'S DISEASE
     Route: 058
     Dates: start: 20091001, end: 20100201
  2. HUMIRA [Suspect]
     Dosage: HUMIRA PENS
     Route: 058
     Dates: start: 20100201
  3. HUMIRA [Suspect]
     Indication: CROHN'S DISEASE
     Route: 058
     Dates: start: 20100201

REACTIONS (2)
  - INFLUENZA [None]
  - CROHN'S DISEASE [None]
